FAERS Safety Report 23237455 (Version 1)
Quarter: 2023Q4

REPORT INFORMATION
  Report Type: Spontaneous
  Country: AU (occurrence: AU)
  Receive Date: 20231128
  Receipt Date: 20231128
  Transmission Date: 20240110
  Serious: Yes (Other)
  Sender: FDA-Public Use
  Company Number: AU-JAZZ PHARMACEUTICALS-2023-AU-023636

PATIENT
  Sex: Male

DRUGS (1)
  1. DEFITELIO [Suspect]
     Active Substance: DEFIBROTIDE SODIUM
     Indication: Product used for unknown indication
     Dosage: UNK
     Dates: start: 2023, end: 2023

REACTIONS (4)
  - Cystitis haemorrhagic [Unknown]
  - Enterococcal infection [Unknown]
  - Febrile neutropenia [Unknown]
  - Pneumonia [Unknown]
